FAERS Safety Report 20828913 (Version 3)
Quarter: 2022Q4

REPORT INFORMATION
  Report Type: Spontaneous
  Country: JP (occurrence: JP)
  Receive Date: 20220513
  Receipt Date: 20221207
  Transmission Date: 20230113
  Serious: Yes (Disabling)
  Sender: FDA-Public Use
  Company Number: JP-MYOVANT SCIENCES GMBH-2022MYSCI0400269

PATIENT
  Age: 42 Year
  Sex: Female

DRUGS (4)
  1. RELUGOLIX [Suspect]
     Active Substance: RELUGOLIX
     Indication: Uterine leiomyoma
     Dosage: 40 MILLIGRAM, QD
     Route: 048
     Dates: start: 20211125
  2. PREDNISOLONE [Concomitant]
     Active Substance: PREDNISOLONE
     Indication: Myasthenia gravis
     Dosage: 5 MILLIGRAM, QD
     Route: 048
     Dates: start: 201707
  3. METGLUCO [Concomitant]
     Active Substance: METFORMIN HYDROCHLORIDE
     Indication: Type 2 diabetes mellitus
     Dosage: 500 MILLIGRAM, QD
     Route: 048
     Dates: start: 20160511, end: 20220310
  4. MIYA-BM [Concomitant]
     Active Substance: CLOSTRIDIUM BUTYRICUM SPORES STRAIN M-55
     Indication: Diarrhoea
     Dosage: 3 DOSAGE FORM, QD
     Route: 048
     Dates: start: 20210903

REACTIONS (1)
  - Hyperglycaemia [Recovered/Resolved with Sequelae]

NARRATIVE: CASE EVENT DATE: 20220120
